FAERS Safety Report 20623252 (Version 1)
Quarter: 2022Q1

REPORT INFORMATION
  Report Type: Spontaneous
  Country: US (occurrence: US)
  Receive Date: 20220322
  Receipt Date: 20220322
  Transmission Date: 20220424
  Serious: No
  Sender: FDA-Public Use
  Company Number: US-ALLERGAN-2207658US

PATIENT
  Sex: Female

DRUGS (1)
  1. LUMIGAN [Suspect]
     Active Substance: BIMATOPROST
     Indication: Glaucoma
     Dosage: UNK
     Dates: start: 202109

REACTIONS (4)
  - Night blindness [Unknown]
  - Visual impairment [Unknown]
  - Pupillary disorder [Unknown]
  - Eyelash changes [Unknown]
